FAERS Safety Report 26047222 (Version 1)
Quarter: 2025Q4

REPORT INFORMATION
  Report Type: Spontaneous
  Country: US (occurrence: US)
  Receive Date: 20251114
  Receipt Date: 20251114
  Transmission Date: 20260118
  Serious: No
  Sender: ORYZA PHARMACEUTICALS
  Company Number: US-ORYZAPHARMA-2025ORYSPO-00012

PATIENT
  Age: 61 Year
  Sex: Female
  Weight: 150 kg

DRUGS (3)
  1. METOPROLOL SUCCINATE [Suspect]
     Active Substance: METOPROLOL SUCCINATE
     Indication: Cardiac failure congestive
     Dates: start: 20251104, end: 20251107
  2. METOPROLOL SUCCINATE [Suspect]
     Active Substance: METOPROLOL SUCCINATE
     Indication: Blood pressure systolic increased
  3. XANAX [Concomitant]
     Active Substance: ALPRAZOLAM
     Dosage: EXTENDED RELEASE (XL)

REACTIONS (2)
  - Tremor [Unknown]
  - Nervousness [Unknown]

NARRATIVE: CASE EVENT DATE: 20251106
